FAERS Safety Report 5690751-3 (Version None)
Quarter: 2008Q2

REPORT INFORMATION
  Report Type: 
  Country: None (occurrence: None)
  Receive Date: 20080401
  Receipt Date: 20080320
  Transmission Date: 20081010
  Serious: Yes (Other)
  Sender: FDA-Public Use
  Company Number: US-JNJFOC-20080106531

PATIENT
  Sex: Male

DRUGS (3)
  1. VIADUR [Suspect]
     Indication: DRUG USE FOR UNKNOWN INDICATION
     Route: 058
  2. ASPIRIN [Concomitant]
     Indication: DRUG USE FOR UNKNOWN INDICATION
     Route: 065
  3. IBUPROFEN [Concomitant]
     Indication: DRUG USE FOR UNKNOWN INDICATION
     Route: 065

REACTIONS (14)
  - ANXIETY [None]
  - ARTHRALGIA [None]
  - ASTHENIA [None]
  - DEPRESSION [None]
  - ERECTILE DYSFUNCTION [None]
  - GYNAECOMASTIA [None]
  - HOT FLUSH [None]
  - IRRITABILITY [None]
  - MYALGIA [None]
  - NEUROPATHY PERIPHERAL [None]
  - NOCTURIA [None]
  - OEDEMA PERIPHERAL [None]
  - VISUAL ACUITY REDUCED [None]
  - WEIGHT INCREASED [None]
